FAERS Safety Report 4654496-0 (Version None)
Quarter: 2005Q2

REPORT INFORMATION
  Report Type: 
  Country: None (occurrence: None)
  Receive Date: 20050504
  Receipt Date: 20050504
  Transmission Date: 20051028
  Serious: Yes (Life-Threatening)
  Sender: FDA-Public Use
  Company Number: None

PATIENT
  Age: 77 Year
  Sex: Male

DRUGS (2)
  1. ACTOS [Suspect]
     Indication: DIABETES MELLITUS
     Dosage: 45 MG DAILY ORAL
     Route: 048
     Dates: start: 20050101, end: 20050228
  2. MOBIC [Suspect]
     Indication: ARTHRITIS
     Dosage: 15 MG DAILY ORAL
     Route: 048
     Dates: start: 20050101, end: 20050228

REACTIONS (2)
  - DYSPNOEA [None]
  - PULMONARY OEDEMA [None]
